FAERS Safety Report 6053176-7 (Version None)
Quarter: 2009Q1

REPORT INFORMATION
  Report Type: 
  Country: None (occurrence: None)
  Receive Date: 20090123
  Receipt Date: 20090114
  Transmission Date: 20090719
  Serious: Yes (Hospitalization)
  Sender: FDA-Public Use
  Company Number: DSA_33096_2009

PATIENT
  Sex: Female

DRUGS (2)
  1. LORAZEPAM [Suspect]
     Dosage: (NOT THE PRESCRIBED AMOUNT; SUSPECTED AMOUNT WAS 5 TABLETS ORAL)
     Route: 048
     Dates: start: 20090113, end: 20090113
  2. ETHANOL   (ALCOHOL) [Suspect]
     Dosage: (DF ORAL)
     Route: 048
     Dates: start: 20090113, end: 20090113

REACTIONS (3)
  - BLOOD ALCOHOL INCREASED [None]
  - DRUG ABUSE [None]
  - FEELING DRUNK [None]
